FAERS Safety Report 9931840 (Version 1)
Quarter: 2014Q1

REPORT INFORMATION
  Report Type: Spontaneous
  Country: US (occurrence: None)
  Receive Date: 20140227
  Receipt Date: 20140227
  Transmission Date: 20141002
  Serious: Yes (Hospitalization)
  Sender: FDA-Public Use
  Company Number: None

PATIENT
  Sex: 0

DRUGS (1)
  1. PREDNISONE [Suspect]
     Dosage: 6 A DAY, THEN 5 AD

REACTIONS (2)
  - Rash [None]
  - Rash [None]
